FAERS Safety Report 18790773 (Version 1)
Quarter: 2021Q1

REPORT INFORMATION
  Report Type: Spontaneous
  Country: CZ (occurrence: CZ)
  Receive Date: 20210126
  Receipt Date: 20210126
  Transmission Date: 20210419
  Serious: Yes (Other)
  Sender: FDA-Public Use
  Company Number: CZ-TAKEDA-2021TUS003254

PATIENT
  Sex: Male

DRUGS (6)
  1. EMICIZUMAB. [Concomitant]
     Active Substance: EMICIZUMAB
     Indication: FACTOR VIII DEFICIENCY
     Route: 065
  2. FACTOR VIIA, RECOMBINANT [Concomitant]
     Active Substance: COAGULATION FACTOR VIIA RECOMBINANT HUMAN
     Route: 065
  3. PROTEIN C [Suspect]
     Active Substance: PROTEIN C
     Indication: FACTOR VIII DEFICIENCY
     Route: 065
  4. HUMAN PROTHROMBIN COMPLEX TOTAL [COAGULATION FACTOR IX HUMAN\COAGULATION FACTOR VII HUMAN\COAGULATION FACTOR X HUMAN\PROTEIN C\PROTHROMBIN] [Suspect]
     Active Substance: COAGULATION FACTOR IX HUMAN\COAGULATION FACTOR VII HUMAN\COAGULATION FACTOR X HUMAN\PROTEIN C\PROTHROMBIN
     Dosage: 49 INTERNATIONAL UNIT/KILOGRAM, 3/WEEK
     Route: 065
     Dates: start: 2017, end: 2020
  5. RITUXIMAB. [Concomitant]
     Active Substance: RITUXIMAB
     Route: 065
  6. HUMAN PROTHROMBIN COMPLEX TOTAL [COAGULATION FACTOR IX HUMAN\COAGULATION FACTOR VII HUMAN\COAGULATION FACTOR X HUMAN\PROTEIN C\PROTHROMBIN] [Suspect]
     Active Substance: COAGULATION FACTOR IX HUMAN\COAGULATION FACTOR VII HUMAN\COAGULATION FACTOR X HUMAN\PROTEIN C\PROTHROMBIN
     Indication: FACTOR VIII DEFICIENCY
     Dosage: 37 INTERNATIONAL UNIT/KILOGRAM, 3/WEEK
     Route: 065
     Dates: start: 2017, end: 2020

REACTIONS (1)
  - Haemarthrosis [Unknown]
